FAERS Safety Report 12559270 (Version 1)
Quarter: 2016Q3

REPORT INFORMATION
  Report Type: Spontaneous
  Country: US (occurrence: US)
  Receive Date: 20160715
  Receipt Date: 20160715
  Transmission Date: 20161109
  Serious: Yes (Hospitalization, Other)
  Sender: FDA-Public Use
  Company Number: US-ZYDUS-011581

PATIENT
  Age: 35 Year
  Sex: Female

DRUGS (1)
  1. BUPROPION/BUPROPION HYDROCHLORIDE [Suspect]
     Active Substance: BUPROPION HYDROCHLORIDE
     Indication: PRODUCT USED FOR UNKNOWN INDICATION
     Dosage: 90-100 TABLETS OF EXTENDED RELEASE BUPROPION HYDROCHLORIDE (13.5-15G).
     Route: 048

REACTIONS (8)
  - Ventricular tachyarrhythmia [Unknown]
  - Myocardial stunning [Unknown]
  - Mental status changes [Unknown]
  - Intentional overdose [Recovering/Resolving]
  - Poisoning deliberate [Unknown]
  - Generalised tonic-clonic seizure [Unknown]
  - Cardiac arrest [Unknown]
  - Hypotension [Unknown]
